FAERS Safety Report 5529558-6 (Version None)
Quarter: 2007Q4

REPORT INFORMATION
  Report Type: 
  Country: None (occurrence: None)
  Receive Date: 20071129
  Receipt Date: 20071120
  Transmission Date: 20080405
  Serious: Yes (Hospitalization)
  Sender: FDA-Public Use
  Company Number: US-ELI_LILLY_AND_COMPANY-US200711004795

PATIENT
  Sex: Female
  Weight: 76.19 kg

DRUGS (10)
  1. BYETTA [Suspect]
     Indication: WEIGHT DECREASED
     Dosage: 5 UG, 2/D
     Route: 058
     Dates: start: 20061108, end: 20070501
  2. BYETTA [Suspect]
     Dosage: 10 UG, 2/D
     Route: 058
     Dates: start: 20070501, end: 20071101
  3. BYETTA [Suspect]
     Dosage: 10 UG, 2/D
     Route: 058
     Dates: start: 20071101, end: 20071115
  4. PROZAC [Concomitant]
     Indication: BIPOLAR DISORDER
     Dosage: 60 MG, DAILY (1/D)
     Route: 048
  5. LITHIUM CARBONATE [Concomitant]
     Indication: BIPOLAR DISORDER
     Dosage: 900 MG, DAILY (1/D)
     Route: 048
  6. CYTOMEL [Concomitant]
     Dosage: 25 UG, DAILY (1/D)
     Route: 048
  7. WELLBUTRIN [Concomitant]
     Indication: BIPOLAR DISORDER
     Dosage: 600 MG, DAILY (1/D)
     Route: 048
  8. PROVIGIL [Concomitant]
     Indication: BIPOLAR I DISORDER
     Dosage: 200 MG, DAILY (1/D)
     Route: 048
  9. ZETIA [Concomitant]
     Indication: BLOOD CHOLESTEROL INCREASED
     Dosage: 10 MG, DAILY (1/D)
     Route: 048
  10. CRESTOR [Concomitant]
     Indication: BLOOD CHOLESTEROL INCREASED
     Dosage: 20 MG, DAILY (1/D)
     Route: 048

REACTIONS (6)
  - ABDOMINAL PAIN LOWER [None]
  - COLITIS ISCHAEMIC [None]
  - INFECTION [None]
  - PYREXIA [None]
  - RECTAL HAEMORRHAGE [None]
  - WEIGHT DECREASED [None]
